FAERS Safety Report 25777177 (Version 1)
Quarter: 2025Q3

REPORT INFORMATION
  Report Type: Spontaneous
  Country: US (occurrence: US)
  Receive Date: 20250909
  Receipt Date: 20250909
  Transmission Date: 20251021
  Serious: No
  Sender: DOMPE FARMACEUTICI
  Company Number: US-FARMAPROD-202410-3541

PATIENT
  Sex: Female

DRUGS (12)
  1. OXERVATE [Suspect]
     Active Substance: CENEGERMIN-BKBJ
     Indication: Neurotrophic keratopathy
     Route: 047
     Dates: start: 20240910
  2. MULTI-VITAMIN DAILY [Concomitant]
  3. XIIDRA [Concomitant]
     Active Substance: LIFITEGRAST
  4. RESTASIS [Concomitant]
     Active Substance: CYCLOSPORINE
  5. AMLODIPINE BESYLATE [Concomitant]
     Active Substance: AMLODIPINE BESYLATE
  6. ATORVASTATIN CALCIUM [Concomitant]
     Active Substance: ATORVASTATIN CALCIUM
  7. LOSARTAN POTASSIUM [Concomitant]
     Active Substance: LOSARTAN POTASSIUM
  8. GABAPENTIN [Concomitant]
     Active Substance: GABAPENTIN
  9. METOPROLOL SUCCINATE [Concomitant]
     Active Substance: METOPROLOL SUCCINATE
  10. DEXILANT [Concomitant]
     Active Substance: DEXLANSOPRAZOLE
  11. PREMARIN [Concomitant]
     Active Substance: ESTROGENS, CONJUGATED
  12. TRAZODONE HCL [Concomitant]
     Active Substance: TRAZODONE HYDROCHLORIDE

REACTIONS (3)
  - Eye pain [Unknown]
  - Eyelid pain [Unknown]
  - Product dose omission issue [Unknown]
